FAERS Safety Report 18969084 (Version 1)
Quarter: 2021Q1

REPORT INFORMATION
  Report Type: Spontaneous
  Country: US (occurrence: US)
  Receive Date: 20210304
  Receipt Date: 20210304
  Transmission Date: 20210420
  Serious: No
  Sender: FDA-Public Use
  Company Number: US-GLAXOSMITHKLINE-US2021051399

PATIENT
  Age: 79 Year
  Sex: Male

DRUGS (1)
  1. NUCALA [Suspect]
     Active Substance: MEPOLIZUMAB
     Indication: ASTHMA
     Dosage: 100 MG, CYC
     Route: 042

REACTIONS (10)
  - Decreased appetite [Unknown]
  - Adverse drug reaction [Unknown]
  - Injection site pain [Unknown]
  - Limb injury [Unknown]
  - Rhinorrhoea [Unknown]
  - Hypoaesthesia [Recovered/Resolved]
  - Insomnia [Unknown]
  - Swelling [Unknown]
  - Pruritus [Unknown]
  - Arthralgia [Unknown]

NARRATIVE: CASE EVENT DATE: 202101
